FAERS Safety Report 5007088-8 (Version None)
Quarter: 2006Q1

REPORT INFORMATION
  Report Type: 
  Country: None (occurrence: None)
  Receive Date: 20060330
  Receipt Date: 20051227
  Transmission Date: 20060701
  Serious: Yes (Hospitalization, Other)
  Sender: FDA-Public Use
  Company Number: 2005142742

PATIENT
  Age: 28 Year
  Sex: Male

DRUGS (3)
  1. ZMAX [Suspect]
     Indication: RESPIRATORY TRACT INFECTION
     Dosage: 2 GRAM
     Dates: start: 20050919, end: 20050919
  2. ALEVE [Concomitant]
  3. HISTUSSIN HC (CHLORPHENAMINE MALEATE, HYDROCODONE BITARTRATE, PHENYLEP [Concomitant]

REACTIONS (1)
  - STEVENS-JOHNSON SYNDROME [None]
